FAERS Safety Report 9404874 (Version 1)
Quarter: 2013Q3

REPORT INFORMATION
  Report Type: Spontaneous
  Country: US (occurrence: None)
  Receive Date: 20130716
  Receipt Date: 20130716
  Transmission Date: 20140515
  Serious: Yes (Hospitalization)
  Sender: FDA-Public Use
  Company Number: None

PATIENT
  Age: 75 Year
  Sex: Male

DRUGS (8)
  1. TRADJENTA [Suspect]
     Indication: TYPE 2 DIABETES MELLITUS
     Route: 048
     Dates: start: 201303, end: 20130706
  2. ARICEPT [Concomitant]
  3. NAMENDA [Concomitant]
  4. METFORMIN [Concomitant]
  5. TIMOLOL [Concomitant]
  6. TRAVATAN [Concomitant]
  7. CURCUMIN [Concomitant]
  8. VITD3 [Concomitant]

REACTIONS (5)
  - Nausea [None]
  - Vomiting [None]
  - Chills [None]
  - Hyperhidrosis [None]
  - Pancreatitis [None]
